FAERS Safety Report 4922320-4 (Version None)
Quarter: 2006Q1

REPORT INFORMATION
  Report Type: 
  Country: None (occurrence: None)
  Receive Date: 20060221
  Receipt Date: 20060206
  Transmission Date: 20060701
  Serious: Yes (Hospitalization)
  Sender: FDA-Public Use
  Company Number: 2006018261

PATIENT
  Age: 47 Year
  Sex: Male

DRUGS (4)
  1. COLESTIPOL HCL [Suspect]
     Indication: HEPATITIS
     Dosage: 1 GRAM (1 GRAM, 1 IN 1 D), ORAL
     Route: 048
     Dates: start: 20051005, end: 20051103
  2. INTERFERON ALFA (INTERFERON ALFA) [Suspect]
     Indication: HEPATITIS
     Dosage: 0.5ML = 3MILJIE (DAILY INTERVAL: EVERY DAY) SUBCUTANEOUS
     Route: 058
     Dates: start: 20050404, end: 20051103
  3. REBETOL [Suspect]
     Indication: HEPATITIS
     Dosage: 1200 MG (DAILY INTERVAL: EVERY DAY), ORAL
     Route: 048
     Dates: start: 20050330, end: 20051103
  4. ALVEDON (PARACETAMOL) [Concomitant]

REACTIONS (7)
  - ALANINE AMINOTRANSFERASE INCREASED [None]
  - BLOOD BILIRUBIN INCREASED [None]
  - LIVER DISORDER [None]
  - NAUSEA [None]
  - PLATELET COUNT DECREASED [None]
  - VOMITING [None]
  - WHITE BLOOD CELL COUNT INCREASED [None]
